FAERS Safety Report 7784996-6 (Version None)
Quarter: 2011Q3

REPORT INFORMATION
  Report Type: 
  Country: None (occurrence: None)
  Receive Date: 20110928
  Receipt Date: 20110923
  Transmission Date: 20111222
  Serious: Yes (Other)
  Sender: FDA-Public Use
  Company Number: PHHY2011NL78016

PATIENT
  Sex: Female

DRUGS (2)
  1. ZOMETA [Suspect]
     Dosage: 4 MG/ 5 ML
     Dates: start: 20110902
  2. ZOMETA [Suspect]
     Indication: BREAST CANCER METASTATIC
     Dosage: 4 MG/ 5 ML
     Dates: start: 20110804

REACTIONS (5)
  - NEOPLASM MALIGNANT [None]
  - NAUSEA [None]
  - ASCITES [None]
  - FATIGUE [None]
  - NEOPLASM PROGRESSION [None]
